FAERS Safety Report 4861159-5 (Version None)
Quarter: 2005Q4

REPORT INFORMATION
  Report Type: 
  Country: None (occurrence: None)
  Receive Date: 20051216
  Receipt Date: 20051129
  Transmission Date: 20060501
  Serious: Yes (Death, Hospitalization)
  Sender: FDA-Public Use
  Company Number: 200514143GDS

PATIENT
  Age: 66 Year
  Sex: Male
  Weight: 84.7 kg

DRUGS (31)
  1. DTIC-DOME [Suspect]
     Indication: HODGKIN'S DISEASE
     Dosage: 750 MG, TOTAL DAILY, INTRAVENO; SEE IMAGE
     Route: 042
     Dates: start: 20050712
  2. DTIC-DOME [Suspect]
     Indication: HODGKIN'S DISEASE
     Dosage: 750 MG, TOTAL DAILY, INTRAVENO; SEE IMAGE
     Route: 042
     Dates: start: 20050726
  3. DTIC-DOME [Suspect]
     Indication: HODGKIN'S DISEASE
     Dosage: 750 MG, TOTAL DAILY, INTRAVENO; SEE IMAGE
     Route: 042
     Dates: start: 20050809
  4. DTIC-DOME [Suspect]
     Indication: HODGKIN'S DISEASE
     Dosage: 750 MG, TOTAL DAILY, INTRAVENO; SEE IMAGE
     Route: 042
     Dates: start: 20050823
  5. BLEOMYCIN [Suspect]
     Indication: HODGKIN'S DISEASE
     Dosage: 20 IU, TOTAL DAILY, INTRAVENOUS; SEE IMAGE
     Route: 042
     Dates: start: 20050712
  6. BLEOMYCIN [Suspect]
     Indication: HODGKIN'S DISEASE
     Dosage: 20 IU, TOTAL DAILY, INTRAVENOUS; SEE IMAGE
     Route: 042
     Dates: start: 20050726
  7. BLEOMYCIN [Suspect]
     Indication: HODGKIN'S DISEASE
     Dosage: 20 IU, TOTAL DAILY, INTRAVENOUS; SEE IMAGE
     Route: 042
     Dates: start: 20050809
  8. BLEOMYCIN [Suspect]
     Indication: HODGKIN'S DISEASE
     Dosage: 20 IU, TOTAL DAILY, INTRAVENOUS; SEE IMAGE
     Route: 042
     Dates: start: 20050823
  9. VINBLASTINE [Suspect]
     Indication: HODGKIN'S DISEASE
     Dosage: 12 MG, TOTAL DAILY, INTRAVENOU; SEE IMAGE
     Route: 042
     Dates: start: 20050712
  10. VINBLASTINE [Suspect]
     Indication: HODGKIN'S DISEASE
     Dosage: 12 MG, TOTAL DAILY, INTRAVENOU; SEE IMAGE
     Route: 042
     Dates: start: 20050726
  11. VINBLASTINE [Suspect]
     Indication: HODGKIN'S DISEASE
     Dosage: 12 MG, TOTAL DAILY, INTRAVENOU; SEE IMAGE
     Route: 042
     Dates: start: 20050809
  12. VINBLASTINE [Suspect]
     Indication: HODGKIN'S DISEASE
     Dosage: 12 MG, TOTAL DAILY, INTRAVENOU; SEE IMAGE
     Route: 042
     Dates: start: 20050823
  13. DOXORUBICIN [Suspect]
     Indication: HODGKIN'S DISEASE
     Dosage: 12 MG, QD, INTRAVENOUS; SEE IMAGE
     Route: 042
     Dates: start: 20050712
  14. DOXORUBICIN [Suspect]
     Indication: HODGKIN'S DISEASE
     Dosage: 12 MG, QD, INTRAVENOUS; SEE IMAGE
     Route: 042
     Dates: start: 20050726
  15. DOXORUBICIN [Suspect]
     Indication: HODGKIN'S DISEASE
     Dosage: 12 MG, QD, INTRAVENOUS; SEE IMAGE
     Route: 042
     Dates: start: 20050809
  16. DOXORUBICIN [Suspect]
     Indication: HODGKIN'S DISEASE
     Dosage: 12 MG, QD, INTRAVENOUS; SEE IMAGE
     Route: 042
     Dates: start: 20050823
  17. CEFUROXIME [Concomitant]
  18. PREDNISONE 50MG TAB [Concomitant]
  19. SERTRALINE HCL [Concomitant]
  20. CHOLESTYRAMINE [Concomitant]
  21. CODEINE [Concomitant]
  22. WARFARIN [Concomitant]
  23. VANCOMYCIN [Concomitant]
  24. TAZOCIN [Concomitant]
  25. AZITHROMYCIN [Concomitant]
  26. SEPTRA [Concomitant]
  27. METOCLOPRAMIDE [Concomitant]
  28. ONDANSETRON [Concomitant]
  29. DIMENHYDRINATE [Concomitant]
  30. HYDROCORT [Concomitant]
  31. DEXAMETHASONE [Concomitant]

REACTIONS (2)
  - RESPIRATORY DISTRESS [None]
  - RESPIRATORY FAILURE [None]
